FAERS Safety Report 6140196-7 (Version None)
Quarter: 2009Q1

REPORT INFORMATION
  Report Type: 
  Country: None (occurrence: None)
  Receive Date: 20090324
  Receipt Date: 20090319
  Transmission Date: 20090719
  Serious: Yes (Other)
  Sender: FDA-Public Use
  Company Number: 2009002039

PATIENT
  Age: 54 Year
  Sex: Male

DRUGS (1)
  1. TRISENOX [Suspect]
     Indication: ACUTE PROMYELOCYTIC LEUKAEMIA
     Dosage: 0.15 MG/KG (0.15 MG/KG, 1 IN 1 D), INTRAVENOUS
     Route: 042
     Dates: end: 20050101

REACTIONS (2)
  - PANCYTOPENIA [None]
  - STEM CELL TRANSPLANT [None]
